FAERS Safety Report 18856215 (Version 1)
Quarter: 2021Q1

REPORT INFORMATION
  Report Type: Other
  Country: CH (occurrence: CH)
  Receive Date: 20210206
  Receipt Date: 20210206
  Transmission Date: 20210420
  Serious: Yes (Death, Hospitalization, Other)
  Sender: FDA-Public Use
  Company Number: CH-SQUARE-000013

PATIENT
  Age: 64 Year
  Sex: Male

DRUGS (16)
  1. ACICLOVIR [Suspect]
     Active Substance: ACYCLOVIR
     Indication: HERPES SIMPLEX PNEUMONIA
     Dosage: ONE DAY
     Route: 042
  2. IPILIMUMAB [Suspect]
     Active Substance: IPILIMUMAB
     Indication: METASTASES TO CENTRAL NERVOUS SYSTEM
  3. CISPLATIN/ETOPOSIDE [Suspect]
     Active Substance: CISPLATIN\ETOPOSIDE
     Indication: METASTASES TO ADRENALS
  4. NIVOLUMAB [Suspect]
     Active Substance: NIVOLUMAB
  5. DEXAMETHASONE. [Suspect]
     Active Substance: DEXAMETHASONE
     Indication: BRAIN OEDEMA
     Dosage: 12 MG/PER DAY
  6. ACICLOVIR [Suspect]
     Active Substance: ACYCLOVIR
     Indication: HERPES SIMPLEX PNEUMONIA
     Route: 042
  7. ACICLOVIR [Suspect]
     Active Substance: ACYCLOVIR
     Indication: HERPES SIMPLEX PNEUMONIA
     Dosage: THREE DAYS
     Route: 042
  8. DEXAMETHASONE. [Suspect]
     Active Substance: DEXAMETHASONE
     Indication: THROMBOCYTOPENIA
     Dosage: PER DAY
  9. NIVOLUMAB [Suspect]
     Active Substance: NIVOLUMAB
  10. IPILIMUMAB [Suspect]
     Active Substance: IPILIMUMAB
     Indication: IMMUNOSUPPRESSANT DRUG THERAPY
  11. AMOXICILLIN CLAVULANIC ACID [Concomitant]
     Active Substance: AMOXICILLIN\CLAVULANIC ACID
     Indication: PRODUCT USED FOR UNKNOWN INDICATION
  12. CLARITHROMYCIN/CLARITHROMYCIN LACTOBIONATE [Concomitant]
     Active Substance: CLARITHROMYCIN LACTOBIONATE
     Indication: PRODUCT USED FOR UNKNOWN INDICATION
  13. CISPLATIN/ETOPOSIDE [Suspect]
     Active Substance: CISPLATIN\ETOPOSIDE
     Indication: METASTASES TO CENTRAL NERVOUS SYSTEM
  14. NIVOLUMAB [Suspect]
     Active Substance: NIVOLUMAB
  15. CISPLATIN/ETOPOSIDE [Suspect]
     Active Substance: CISPLATIN\ETOPOSIDE
     Indication: SMALL CELL LUNG CANCER
  16. IPILIMUMAB [Suspect]
     Active Substance: IPILIMUMAB
     Indication: METASTASES TO ADRENALS

REACTIONS (4)
  - Cognitive disorder [Fatal]
  - Herpes simplex reactivation [Fatal]
  - Drug ineffective [Fatal]
  - General physical health deterioration [Fatal]
